FAERS Safety Report 6395787-5 (Version None)
Quarter: 2009Q4

REPORT INFORMATION
  Report Type: 
  Country: None (occurrence: None)
  Receive Date: 20091009
  Receipt Date: 20090929
  Transmission Date: 20100525
  Serious: Yes (Hospitalization)
  Sender: FDA-Public Use
  Company Number: DE-ABBOTT-09P-062-0597981-00

PATIENT
  Sex: Female

DRUGS (1)
  1. HUMIRA [Suspect]
     Indication: CROHN'S DISEASE
     Dosage: INDUCTION
     Route: 058
     Dates: start: 20090831

REACTIONS (3)
  - CROHN'S DISEASE [None]
  - INTESTINAL OBSTRUCTION [None]
  - PERITONITIS [None]
